FAERS Safety Report 21795657 (Version 2)
Quarter: 2023Q1

REPORT INFORMATION
  Report Type: Spontaneous
  Country: US (occurrence: US)
  Receive Date: 20221229
  Receipt Date: 20230109
  Transmission Date: 20230418
  Serious: No
  Sender: FDA-Public Use
  Company Number: US-BAYER-2022A170339

PATIENT
  Age: 52 Year
  Sex: Female

DRUGS (1)
  1. CLIMARA PRO [Suspect]
     Active Substance: ESTRADIOL\LEVONORGESTREL
     Indication: Menopausal symptoms
     Route: 062

REACTIONS (2)
  - Device adhesion issue [None]
  - Hot flush [None]

NARRATIVE: CASE EVENT DATE: 20221212
